FAERS Safety Report 9394079 (Version 1)
Quarter: 2013Q3

REPORT INFORMATION
  Report Type: Spontaneous
  Country: AT (occurrence: AT)
  Receive Date: 20130710
  Receipt Date: 20130710
  Transmission Date: 20140515
  Serious: No
  Sender: FDA-Public Use
  Company Number: AT-B.I. PHARMACEUTICALS,INC./RIDGEFIELD-2013-AP-00531AP

PATIENT
  Age: 72 Year
  Sex: Male
  Weight: 78 kg

DRUGS (12)
  1. TRAJENTA [Suspect]
     Indication: DIABETES MELLITUS
     Dosage: 5 MG
     Route: 048
     Dates: start: 20121218, end: 20130201
  2. ESETROL [Concomitant]
     Indication: HYPERLIPIDAEMIA
     Route: 048
     Dates: start: 2009
  3. ALLOPURINOL [Concomitant]
     Indication: HYPERURICAEMIA
     Dosage: 350 MG
     Route: 048
     Dates: start: 201206
  4. CONCOR [Concomitant]
     Indication: TACHYCARDIA
     Dosage: STREGTH: 2,5 MG ; 1/4 X 1 DAYS
     Route: 048
     Dates: start: 201105
  5. MICARDIS PLUS [Concomitant]
     Indication: HYPERTENSION
     Dosage: STRENGTH: 40/12.5
     Route: 048
     Dates: start: 2009
  6. ASS [Concomitant]
     Dosage: 100 MG
     Route: 048
     Dates: start: 2005
  7. ZOCORD [Concomitant]
     Dosage: 10 MG
     Route: 048
  8. THIAMAZOL [Concomitant]
     Dosage: 5 MG
     Route: 048
     Dates: start: 201202
  9. TRITTICO [Concomitant]
     Dosage: 50 MG
     Dates: start: 2008
  10. NOVORAPID [Concomitant]
     Dates: start: 2005
  11. INSULATARD [Concomitant]
     Dates: start: 2004
  12. REFLUX MEDICATION [Concomitant]

REACTIONS (2)
  - Pancreatitis [Not Recovered/Not Resolved]
  - Abdominal pain [Not Recovered/Not Resolved]
